FAERS Safety Report 9486536 (Version 1)
Quarter: 2013Q3

REPORT INFORMATION
  Report Type: Spontaneous
  Country: US (occurrence: None)
  Receive Date: 20130827
  Receipt Date: 20130827
  Transmission Date: 20140515
  Serious: No
  Sender: FDA-Public Use
  Company Number: None

PATIENT
  Age: 29 Year
  Sex: Female
  Weight: 88.45 kg

DRUGS (5)
  1. BOTOX [Suspect]
     Indication: MIGRAINE
     Dosage: INJECTION GIVEN INTO/UNDER THE SKIN?EVERY 3 MONTHS
  2. ZANAFLEX [Concomitant]
  3. MOTRIN [Concomitant]
  4. IMATREX [Concomitant]
  5. ASPIRIN [Concomitant]

REACTIONS (16)
  - Muscular weakness [None]
  - Asthenia [None]
  - Sensation of heaviness [None]
  - Pain in extremity [None]
  - Back pain [None]
  - Neck pain [None]
  - Fatigue [None]
  - Dizziness [None]
  - Dizziness [None]
  - Vision blurred [None]
  - Diplopia [None]
  - Lethargy [None]
  - Viral infection [None]
  - Injection site pain [None]
  - Injection site pruritus [None]
  - Migraine [None]
